FAERS Safety Report 15155054 (Version 2)
Quarter: 2019Q1

REPORT INFORMATION
  Report Type: Spontaneous
  Country: BR (occurrence: BR)
  Receive Date: 20180717
  Receipt Date: 20190207
  Transmission Date: 20190417
  Serious: Yes (Hospitalization, Other)
  Sender: FDA-Public Use
  Company Number: BR-SA-2018SA189611

PATIENT
  Sex: Female
  Weight: 60 kg

DRUGS (1)
  1. CLEXANE [Suspect]
     Active Substance: ENOXAPARIN SODIUM
     Indication: THROMBOSIS
     Dosage: 1 DF, QD
     Route: 058
     Dates: start: 201803

REACTIONS (5)
  - Gestational diabetes [Not Recovered/Not Resolved]
  - Hypertension [Not Recovered/Not Resolved]
  - Hospitalisation [Unknown]
  - Bacterial infection [Unknown]
  - Exposure during pregnancy [Unknown]
